FAERS Safety Report 8829763 (Version 1)
Quarter: 2012Q4

REPORT INFORMATION
  Report Type: 
  Country: DE (occurrence: DE)
  Receive Date: 20121008
  Receipt Date: 20121008
  Transmission Date: 20130627
  Serious: Yes (Death)
  Sender: FDA-Public Use
  Company Number: DE-TEVA-361135GER

PATIENT
  Age: 85 Year
  Sex: Female
  Weight: 64 kg

DRUGS (13)
  1. MTX [Suspect]
     Indication: RHEUMATOID ARTHRITIS
     Route: 048
  2. NOVAMINSULFON [Suspect]
     Indication: PAIN
     Dosage: 120 Gtt Daily;
     Route: 048
  3. KALIUM VERLA [Concomitant]
     Route: 048
  4. MARCUMAR [Concomitant]
     Route: 048
  5. NOVODIGAL [Concomitant]
     Dosage: .1 Milligram Daily; 1-0-0
     Route: 048
  6. TORASEMID [Concomitant]
     Dosage: 30 Milligram Daily; 2-1-0
     Route: 048
  7. SPIRO 25 [Concomitant]
     Dosage: 25 Milligram Daily; 1-0-0
     Route: 048
  8. METOHEXAL [Concomitant]
     Dosage: 0.5-0-0
     Route: 048
  9. RAMIPRIL [Concomitant]
     Dosage: 2.5 Milligram Daily; 1-0-0
     Route: 048
  10. SPASMEX [Concomitant]
     Dosage: 30 Milligram Daily; 0-0-1
     Route: 048
  11. DECORTIN-H 5 MG [Concomitant]
     Indication: RHEUMATOID ARTHRITIS
     Dosage: 7.5 Milligram Daily;
     Route: 048
  12. TILIDINE COMP. [Concomitant]
     Dosage: 2 Dosage forms Daily; 1 DF = 50 mg tilidine + 4 mg naloxone
     Route: 048
  13. ATOSIL TROPFEN [Concomitant]
     Dosage: 3 Gtt Daily; 0-0-0-3
     Route: 048

REACTIONS (1)
  - Agranulocytosis [Fatal]
